FAERS Safety Report 16074323 (Version 1)
Quarter: 2019Q1

REPORT INFORMATION
  Report Type: Spontaneous
  Country: US (occurrence: US)
  Receive Date: 20190314
  Receipt Date: 20190314
  Transmission Date: 20190418
  Serious: No
  Sender: FDA-Public Use
  Company Number: US-HISAMITSU-2018-US-006924

PATIENT
  Age: 75 Year
  Sex: Male
  Weight: 68.04 kg

DRUGS (5)
  1. SALONPAS PAIN RELIEF [Suspect]
     Active Substance: MENTHOL\METHYL SALICYLATE
     Indication: ANALGESIC THERAPY
     Dosage: 1 PATCH TO LEFT SHOULDER ONCE FOR 10 HOURS
     Route: 061
     Dates: start: 20180424, end: 20180424
  2. SAW PALMETTO [Concomitant]
     Active Substance: HERBALS\SAW PALMETTO
  3. TURMERIC [Concomitant]
     Active Substance: HERBALS\TURMERIC
  4. OMEGA-3 SUPPLEMENT [Concomitant]
  5. GLUCOSAMINE [Concomitant]
     Active Substance: GLUCOSAMINE

REACTIONS (1)
  - Dysgeusia [Unknown]

NARRATIVE: CASE EVENT DATE: 20180424
